FAERS Safety Report 24251500 (Version 3)
Quarter: 2025Q1

REPORT INFORMATION
  Report Type: Report from Study
  Country: CA (occurrence: CA)
  Receive Date: 20240826
  Receipt Date: 20250106
  Transmission Date: 20250408
  Serious: Yes (Death, Hospitalization)
  Sender: BOEHRINGER INGELHEIM
  Company Number: CA-BoehringerIngelheim-2022-BI-185338

PATIENT
  Age: 65 Year
  Sex: Male

DRUGS (3)
  1. OFEV [Suspect]
     Active Substance: NINTEDANIB
     Indication: Idiopathic pulmonary fibrosis
     Route: 048
  2. OFEV [Suspect]
     Active Substance: NINTEDANIB
     Route: 048
     Dates: start: 20220627, end: 20240825
  3. OFEV [Suspect]
     Active Substance: NINTEDANIB
     Dates: start: 20240924, end: 20241208

REACTIONS (8)
  - Death [Fatal]
  - Cardiac disorder [Not Recovered/Not Resolved]
  - Post procedural complication [Not Recovered/Not Resolved]
  - Weight decreased [Recovered/Resolved]
  - Gastrointestinal disorder [Recovered/Resolved]
  - Dyspnoea exertional [Not Recovered/Not Resolved]
  - Nausea [Not Recovered/Not Resolved]
  - Decreased appetite [Not Recovered/Not Resolved]

NARRATIVE: CASE EVENT DATE: 20240826
